FAERS Safety Report 10206025 (Version 1)
Quarter: 2014Q2

REPORT INFORMATION
  Report Type: Report from Study
  Country: BR (occurrence: BR)
  Receive Date: 20140530
  Receipt Date: 20140530
  Transmission Date: 20141212
  Serious: Yes (Hospitalization)
  Sender: FDA-Public Use
  Company Number: BR-BRISTOL-MYERS SQUIBB COMPANY-20855888

PATIENT
  Age: 63 Year
  Sex: Male
  Weight: 54 kg

DRUGS (1)
  1. ERBITUX [Suspect]
     Indication: HEAD AND NECK CANCER
     Dosage: LAST INFUSION:05MAY14
     Dates: start: 20140505

REACTIONS (7)
  - Increased bronchial secretion [Unknown]
  - Influenza [Unknown]
  - Platelet count decreased [Unknown]
  - Muscular weakness [Unknown]
  - Cough [Unknown]
  - Weight decreased [Unknown]
  - Stomatitis [Unknown]
